FAERS Safety Report 5629427-7 (Version None)
Quarter: 2008Q1

REPORT INFORMATION
  Report Type: 
  Country: None (occurrence: None)
  Receive Date: 20080218
  Receipt Date: 20080125
  Transmission Date: 20080703
  Serious: No
  Sender: FDA-Public Use
  Company Number: US-BAXTER-2008BH000873

PATIENT
  Age: 8 Year
  Sex: Female
  Weight: 19 kg

DRUGS (8)
  1. HEPARIN SODIUM [Suspect]
     Indication: PROPHYLAXIS
     Dosage: DOSE UNIT:UNKNOWN
     Route: 033
     Dates: start: 20070801, end: 20070801
  2. GREEN [Concomitant]
     Indication: RENAL FAILURE
     Route: 033
  3. RED [Concomitant]
     Indication: RENAL FAILURE
     Route: 033
     Dates: start: 20071101, end: 20080118
  4. EPOGEN [Concomitant]
     Indication: RENAL DISORDER
     Route: 058
  5. C-PARICALCITOL [Concomitant]
     Indication: VITAMIN SUPPLEMENTATION
     Route: 048
  6. ENALAPRIL MALEATE [Concomitant]
     Indication: BLOOD PRESSURE INCREASED
     Route: 048
  7. NORVASC [Concomitant]
     Indication: BLOOD PRESSURE INCREASED
     Route: 048
  8. NISEREX [Concomitant]
     Indication: VITAMIN SUPPLEMENTATION
     Route: 048

REACTIONS (3)
  - CHEST PAIN [None]
  - DIZZINESS [None]
  - HEART RATE INCREASED [None]
